FAERS Safety Report 18233264 (Version 1)
Quarter: 2020Q3

REPORT INFORMATION
  Report Type: Spontaneous
  Country: US (occurrence: US)
  Receive Date: 20200904
  Receipt Date: 20200904
  Transmission Date: 20201103
  Serious: No
  Sender: FDA-Public Use
  Company Number: US-OSMOTICA_PHARMACEUTICAL_US_LLC-POI0573202000409

PATIENT
  Age: 69 Year
  Sex: Female

DRUGS (3)
  1. UNSPECIFIED PARKINSONS MEDICATIONS [Concomitant]
     Indication: PARKINSON^S DISEASE
  2. OSMOLEX ER [Suspect]
     Active Substance: AMANTADINE
     Indication: PARKINSON^S DISEASE
     Dates: start: 201908
  3. UNSPECIFIED CHOLESTEROL MEDICATIONS [Concomitant]
     Indication: BLOOD CHOLESTEROL

REACTIONS (3)
  - Flatulence [Unknown]
  - Diarrhoea [Unknown]
  - Abdominal discomfort [Unknown]

NARRATIVE: CASE EVENT DATE: 202006
